FAERS Safety Report 13139898 (Version 1)
Quarter: 2017Q1

REPORT INFORMATION
  Report Type: Spontaneous
  Country: BR (occurrence: BR)
  Receive Date: 20170123
  Receipt Date: 20170123
  Transmission Date: 20170428
  Serious: Yes (Other)
  Sender: FDA-Public Use
  Company Number: BR-009507513-1701BRA008167

PATIENT
  Sex: Female
  Weight: 64 kg

DRUGS (4)
  1. NASONEX [Suspect]
     Active Substance: MOMETASONE FUROATE
     Dosage: 2 DF, QAM(1 PUFF IN EACH NOSTRIL IN THE MORNING)
     Dates: start: 1997
  2. LORATADINE. [Concomitant]
     Active Substance: LORATADINE
     Indication: DERMATITIS ALLERGIC
  3. NASONEX [Suspect]
     Active Substance: MOMETASONE FUROATE
     Indication: RHINITIS
     Dosage: 2 DF, QAM(1 PUFF IN EACH NOSTRIL IN THE MORNING)
     Dates: start: 1997
  4. NASONEX [Suspect]
     Active Substance: MOMETASONE FUROATE
     Dosage: 2 DF, QOD(ONE PUFF IN EACH NOSTRIL IN THE MORNING EVERY OTHER DAY)

REACTIONS (7)
  - Pain in extremity [Not Recovered/Not Resolved]
  - Intraocular pressure increased [Unknown]
  - Drug dependence [Recovered/Resolved]
  - Drug abuser [Recovered/Resolved]
  - Rhinitis [Recovered/Resolved]
  - Cataract [Unknown]
  - Inappropriate schedule of drug administration [Unknown]

NARRATIVE: CASE EVENT DATE: 201604
